FAERS Safety Report 23839753 (Version 4)
Quarter: 2024Q2

REPORT INFORMATION
  Report Type: Spontaneous
  Country: US (occurrence: US)
  Receive Date: 20240510
  Receipt Date: 20240613
  Transmission Date: 20240716
  Serious: Yes (Other)
  Sender: FDA-Public Use
  Company Number: US-JNJFOC-20240479643

PATIENT
  Age: 32 Year
  Sex: Female
  Weight: 81.72 kg

DRUGS (6)
  1. STELARA [Suspect]
     Active Substance: USTEKINUMAB
     Indication: Colitis ulcerative
     Route: 058
  2. STELARA [Suspect]
     Active Substance: USTEKINUMAB
  3. FAMOTIDINE [Concomitant]
     Active Substance: FAMOTIDINE
  4. VIMPAT [Concomitant]
     Active Substance: LACOSAMIDE
  5. LASIX [Concomitant]
     Active Substance: FUROSEMIDE
  6. TOPIRAMATE [Concomitant]
     Active Substance: TOPIRAMATE

REACTIONS (4)
  - Colitis ulcerative [Unknown]
  - Syringe issue [Unknown]
  - Accidental exposure to product [Unknown]
  - Product dose omission issue [Unknown]

NARRATIVE: CASE EVENT DATE: 20240425
